FAERS Safety Report 17499655 (Version 1)
Quarter: 2020Q1

REPORT INFORMATION
  Report Type: Spontaneous
  Country: FR (occurrence: FR)
  Receive Date: 20200305
  Receipt Date: 20200305
  Transmission Date: 20200409
  Serious: Yes (Hospitalization)
  Sender: FDA-Public Use
  Company Number: FR-SUN PHARMACEUTICAL INDUSTRIES LTD-2020RR-239296

PATIENT
  Age: 15 Year
  Sex: Male

DRUGS (5)
  1. DALACINE [Suspect]
     Active Substance: CLINDAMYCIN
     Indication: POISONING
     Dosage: DOSAGE FORM, IN TOTAL1
     Route: 048
     Dates: start: 20200120
  2. PARACETAMOL [Suspect]
     Active Substance: ACETAMINOPHEN
     Indication: POISONING
     Dosage: 1 DOSAGE FORM, DAILY
     Route: 048
     Dates: start: 20200120
  3. KETAMINE [Suspect]
     Active Substance: KETAMINE
     Indication: DRUG ABUSE
     Dosage: 1 DOSAGE FORM, AS NECESSARY
     Route: 065
     Dates: start: 2019
  4. PANTOPRAZOLE [Suspect]
     Active Substance: PANTOPRAZOLE
     Indication: POISONING
     Dosage: 5 DOSAGE FORM, IN TOTAL
     Route: 065
     Dates: start: 20200120
  5. ACTISKENAN 10 MG, GELULE [Suspect]
     Active Substance: MORPHINE SULFATE
     Indication: DRUG ABUSE
     Dosage: 1 DOSAGE FORM, PRN, AS NECESSARY
     Route: 048
     Dates: start: 2019

REACTIONS (2)
  - Drug abuse [Not Recovered/Not Resolved]
  - Poisoning [Recovered/Resolved]

NARRATIVE: CASE EVENT DATE: 2019
